FAERS Safety Report 14232432 (Version 1)
Quarter: 2017Q4

REPORT INFORMATION
  Report Type: Spontaneous
  Country: US (occurrence: US)
  Receive Date: 20171128
  Receipt Date: 20171128
  Transmission Date: 20180321
  Serious: Yes (Other)
  Sender: FDA-Public Use
  Company Number: US-NAPPMUNDI-USA-2017-0141731

PATIENT
  Sex: Female

DRUGS (7)
  1. BACLOFEN. [Concomitant]
     Active Substance: BACLOFEN
     Indication: NEUROMUSCULAR PAIN
     Route: 048
  2. LAMOTRIGINE. [Concomitant]
     Active Substance: LAMOTRIGINE
     Indication: NEUROMUSCULAR PAIN
     Route: 048
  3. OXYCODONE HYDROCHLORIDE (SIMILAR TO NDA 22-272) [Suspect]
     Active Substance: OXYCODONE HYDROCHLORIDE
     Indication: NEUROMUSCULAR PAIN
     Route: 048
  4. SKELAXIN [Concomitant]
     Active Substance: METAXALONE
     Indication: COMPLEX REGIONAL PAIN SYNDROME
     Route: 065
  5. SKELAXIN [Concomitant]
     Active Substance: METAXALONE
     Indication: STENOSIS
  6. SKELAXIN [Concomitant]
     Active Substance: METAXALONE
     Indication: FIBROMYALGIA
  7. GABAPENTIN. [Concomitant]
     Active Substance: GABAPENTIN
     Indication: NEUROMUSCULAR PAIN
     Route: 048

REACTIONS (6)
  - Concussion [Unknown]
  - Foot fracture [Unknown]
  - Fall [Unknown]
  - Ankle fracture [Unknown]
  - Herpes zoster [Unknown]
  - Lower limb fracture [Unknown]
